FAERS Safety Report 9380629 (Version 1)
Quarter: 2013Q3

REPORT INFORMATION
  Report Type: Report from Study
  Country: US (occurrence: US)
  Receive Date: 20130702
  Receipt Date: 20130702
  Transmission Date: 20140515
  Serious: Yes (Hospitalization)
  Sender: FDA-Public Use
  Company Number: US-ABBOTT-13P-163-1110556-00

PATIENT
  Age: 19 Year
  Sex: Male

DRUGS (3)
  1. CREON [Suspect]
     Indication: PANCREATIC INSUFFICIENCY
     Dosage: WITH FEEDING TUBE INSERTION/REMOVAL, WITH MEALS/SNACKS MANY TIMES/DAY
     Dates: start: 1993
  2. CREON [Suspect]
     Indication: CYSTIC FIBROSIS
  3. UNKNOWN MEDICATION [Suspect]

REACTIONS (1)
  - Pancreatitis [Recovered/Resolved]
